FAERS Safety Report 9948266 (Version 1)
Quarter: 2014Q1

REPORT INFORMATION
  Report Type: Report from Study
  Country: US (occurrence: US)
  Receive Date: 20140303
  Receipt Date: 20140303
  Transmission Date: 20141002
  Serious: No
  Sender: FDA-Public Use
  Company Number: US-ABBVIE-13P-163-1059225-00

PATIENT
  Age: 68 Year
  Sex: Male
  Weight: 86.71 kg

DRUGS (3)
  1. HUMIRA [Suspect]
     Indication: PSORIASIS
     Dates: start: 2009, end: 201211
  2. CITALOPRAM [Concomitant]
     Indication: ANXIETY
  3. UNKNOWN CHOLESTEROL DRUG [Concomitant]
     Indication: HYPERLIPIDAEMIA

REACTIONS (2)
  - Psoriasis [Not Recovered/Not Resolved]
  - Haemorrhage [Not Recovered/Not Resolved]
